FAERS Safety Report 24979588 (Version 1)
Quarter: 2025Q1

REPORT INFORMATION
  Report Type: Spontaneous
  Country: FR (occurrence: FR)
  Receive Date: 20250218
  Receipt Date: 20250218
  Transmission Date: 20250409
  Serious: Yes (Hospitalization)
  Sender: RANBAXY
  Company Number: FR-SUN PHARMACEUTICAL INDUSTRIES LTD-2025RR-494650

PATIENT
  Age: 72 Year
  Sex: Female
  Weight: 80 kg

DRUGS (9)
  1. NOREPINEPHRINE BITARTRATE [Suspect]
     Active Substance: NOREPINEPHRINE BITARTRATE
     Indication: Septic shock
     Route: 040
     Dates: start: 20241027, end: 20241111
  2. ARGIPRESSIN [Suspect]
     Active Substance: ARGIPRESSIN
     Indication: Septic shock
     Route: 040
     Dates: start: 20241027, end: 20241028
  3. FLUCONAZOLE [Concomitant]
     Active Substance: FLUCONAZOLE
     Indication: Product used for unknown indication
     Dosage: 400 MILLIGRAM, DAILY
     Route: 040
     Dates: start: 20241104, end: 20241111
  4. MICAFUNGIN [Concomitant]
     Active Substance: MICAFUNGIN SODIUM
     Indication: Product used for unknown indication
     Dosage: 100 MILLIGRAM, DAILY
     Route: 040
     Dates: start: 20241027, end: 20241105
  5. MEROPENEM [Concomitant]
     Active Substance: MEROPENEM
     Indication: Product used for unknown indication
     Dosage: 5.5 GRAM, DAILY
     Route: 040
     Dates: start: 20241028, end: 20241029
  6. INSULIN NOS [Concomitant]
     Active Substance: INSULIN NOS
     Indication: Product used for unknown indication
     Route: 040
  7. PIPERACILLIN SODIUM\TAZOBACTAM SODIUM [Concomitant]
     Active Substance: PIPERACILLIN SODIUM\TAZOBACTAM SODIUM
     Indication: Product used for unknown indication
     Dosage: 750 MILLIGRAM, DAILY
     Route: 040
     Dates: start: 20241028
  8. FLAGYL [Concomitant]
     Active Substance: METRONIDAZOLE\METRONIDAZOLE HYDROCHLORIDE
     Indication: Product used for unknown indication
     Dosage: 750 MILLIGRAM, DAILY
     Route: 040
     Dates: start: 20241030, end: 20241106
  9. CEFEPIME [Concomitant]
     Active Substance: CEFEPIME HYDROCHLORIDE
     Indication: Product used for unknown indication
     Dosage: 6 GRAM, DAILY
     Route: 040
     Dates: start: 20241030, end: 20241104

REACTIONS (1)
  - Extremity necrosis [Not Recovered/Not Resolved]

NARRATIVE: CASE EVENT DATE: 20241106
